FAERS Safety Report 5682472-8 (Version None)
Quarter: 2008Q1

REPORT INFORMATION
  Report Type: 
  Country: None (occurrence: None)
  Receive Date: 20080326
  Receipt Date: 20080326
  Transmission Date: 20080703
  Serious: No
  Sender: FDA-Public Use
  Company Number: None

PATIENT
  Age: 57 Year
  Sex: Male

DRUGS (1)
  1. VISIPAQUE [Suspect]
     Indication: DIAGNOSTIC PROCEDURE
     Dosage: 80 ML IV X 1
     Route: 042
     Dates: start: 20080206

REACTIONS (3)
  - INFUSION RELATED REACTION [None]
  - INJECTION SITE EXTRAVASATION [None]
  - PRURITUS [None]
